FAERS Safety Report 14145425 (Version 2)
Quarter: 2018Q1

REPORT INFORMATION
  Report Type: Spontaneous
  Country: IT (occurrence: IT)
  Receive Date: 20171031
  Receipt Date: 20180214
  Transmission Date: 20180508
  Serious: Yes (Hospitalization)
  Sender: FDA-Public Use
  Company Number: IT-PFIZER INC-2017463984

PATIENT
  Age: 58 Year
  Sex: Female

DRUGS (2)
  1. TAVOR (LORAZEPAM) [Suspect]
     Active Substance: LORAZEPAM
     Indication: INTENTIONAL SELF-INJURY
     Dosage: 10 MG, TOTAL
     Route: 048
     Dates: start: 20170908, end: 20170908
  2. XANAX [Suspect]
     Active Substance: ALPRAZOLAM
     Indication: INTENTIONAL SELF-INJURY
     Dosage: 8 MG, TOTAL
     Route: 048
     Dates: start: 20170908, end: 20170908

REACTIONS (6)
  - Agitation [Recovered/Resolved]
  - Intentional self-injury [Recovered/Resolved]
  - Oxygen saturation decreased [Recovered/Resolved]
  - Balance disorder [Recovered/Resolved]
  - Drug abuse [Recovered/Resolved]
  - Dysarthria [Recovered/Resolved]

NARRATIVE: CASE EVENT DATE: 20170908
